FAERS Safety Report 5707887-0 (Version None)
Quarter: 2008Q2

REPORT INFORMATION
  Report Type: 
  Country: None (occurrence: None)
  Receive Date: 20080414
  Receipt Date: 20080402
  Transmission Date: 20081010
  Serious: Yes (Death, Disabling)
  Sender: FDA-Public Use
  Company Number: OSCN-NO-0804L-0192

PATIENT
  Age: 22 Year
  Sex: Female

DRUGS (10)
  1. OMNISCAN [Suspect]
     Indication: OEDEMA PERIPHERAL
     Dosage: 0.27 MMOL/KG, SINGLE DOSE
     Dates: start: 20000627, end: 20000627
  2. OMNISCAN [Suspect]
     Indication: OEDEMA PERIPHERAL
     Dosage: 0.27 MMOL/KG, SINGLE DOSE
     Dates: start: 20000801, end: 20000801
  3. CYCLOSPORINE [Concomitant]
  4. PREDNISOLONE [Concomitant]
  5. AZATHIOPRINE [Concomitant]
  6. QUINAPRIL [Concomitant]
  7. CAPSAICIN [Concomitant]
  8. SEVELAMER [Concomitant]
  9. ALFACALCIDOL [Concomitant]
  10. WARFARIN SODIUM [Concomitant]

REACTIONS (3)
  - NEPHROGENIC SYSTEMIC FIBROSIS [None]
  - REFUSAL OF TREATMENT BY PATIENT [None]
  - WHEELCHAIR USER [None]
